FAERS Safety Report 4875325-6 (Version None)
Quarter: 2006Q1

REPORT INFORMATION
  Report Type: 
  Country: None (occurrence: None)
  Receive Date: 20060109
  Receipt Date: 20051227
  Transmission Date: 20060701
  Serious: Yes (Hospitalization)
  Sender: FDA-Public Use
  Company Number: US-MERCK-0512USA03805

PATIENT
  Age: 32 Year
  Sex: Female

DRUGS (9)
  1. CELEBREX [Concomitant]
     Route: 065
  2. BEXTRA [Concomitant]
     Route: 065
  3. TOPROL-XL [Concomitant]
     Route: 065
  4. NEXIUM [Concomitant]
     Route: 065
  5. VIOXX [Suspect]
     Indication: PROCEDURAL PAIN
     Route: 048
     Dates: start: 19990101, end: 20040930
  6. DIOVAN [Concomitant]
     Route: 065
  7. AMITRIPTYLINE HYDROCHLORIDE [Concomitant]
     Route: 065
  8. [THERAPY UNSPECIFIED] [Concomitant]
     Route: 065
  9. VICODIN [Concomitant]
     Route: 065

REACTIONS (3)
  - CARDIAC VALVE DISEASE [None]
  - DYSPNOEA [None]
  - HEART RATE IRREGULAR [None]
